FAERS Safety Report 6468364-5 (Version None)
Quarter: 2009Q4

REPORT INFORMATION
  Report Type: 
  Country: None (occurrence: None)
  Receive Date: 20091203
  Receipt Date: 20091124
  Transmission Date: 20100525
  Serious: Yes (Hospitalization, Other)
  Sender: FDA-Public Use
  Company Number: GB-RANBAXY-2007RR-07876

PATIENT
  Age: 69 Year
  Sex: Female

DRUGS (3)
  1. RAMIPRIL [Suspect]
     Indication: HYPERTENSION
     Dosage: 10 MG, UNK
     Route: 048
     Dates: start: 20040501, end: 20050901
  2. BENDROFLUMETHIAZIDE [Concomitant]
     Indication: HYPERTENSION
     Dosage: 2.5 MG, UNK
     Route: 048
     Dates: end: 20051101
  3. DOXAZOSIN [Concomitant]
     Indication: HYPERTENSION
     Dosage: 4 MG, UNK

REACTIONS (7)
  - ABDOMINAL PAIN [None]
  - DIARRHOEA [None]
  - JAUNDICE [None]
  - PANCREATIC CYST [None]
  - PANCREATITIS [None]
  - RASH [None]
  - WEIGHT DECREASED [None]
